FAERS Safety Report 16175951 (Version 1)
Quarter: 2019Q2

REPORT INFORMATION
  Report Type: Spontaneous
  Country: IT (occurrence: IT)
  Receive Date: 20190409
  Receipt Date: 20190409
  Transmission Date: 20190711
  Serious: Yes (Other)
  Sender: FDA-Public Use
  Company Number: IT-JNJFOC-20190406511

PATIENT
  Age: 71 Year
  Sex: Male
  Weight: 70 kg

DRUGS (4)
  1. CARDICOR [Suspect]
     Active Substance: BISOPROLOL
     Indication: INTENTIONAL SELF-INJURY
     Route: 048
     Dates: start: 20190402, end: 20190402
  2. TELMISARTAN. [Suspect]
     Active Substance: TELMISARTAN
     Indication: INTENTIONAL SELF-INJURY
     Route: 048
     Dates: start: 20190402, end: 20190402
  3. NIFEDICOR [Suspect]
     Active Substance: NIFEDIPINE
     Indication: INTENTIONAL SELF-INJURY
     Route: 048
     Dates: start: 20190402, end: 20190402
  4. INVEGA [Suspect]
     Active Substance: PALIPERIDONE
     Indication: INTENTIONAL SELF-INJURY
     Route: 048
     Dates: start: 20190402, end: 20190402

REACTIONS (2)
  - Intentional product misuse [Unknown]
  - Hypotension [Unknown]

NARRATIVE: CASE EVENT DATE: 20190402
